FAERS Safety Report 7933129-1 (Version None)
Quarter: 2011Q4

REPORT INFORMATION
  Report Type: 
  Country: None (occurrence: None)
  Receive Date: 20111121
  Receipt Date: 20111121
  Transmission Date: 20120403
  Serious: Yes (Other)
  Sender: FDA-Public Use
  Company Number: None

PATIENT
  Age: 30 Year
  Sex: Female

DRUGS (1)
  1. NEULASTA [Suspect]
     Indication: BREAST CANCER
     Dosage: 6MG Q2W SQ
     Route: 058
     Dates: start: 20111025, end: 20111117

REACTIONS (1)
  - ABDOMINAL PAIN UPPER [None]
